FAERS Safety Report 11108711 (Version 1)
Quarter: 2015Q2

REPORT INFORMATION
  Report Type: Spontaneous
  Country: US (occurrence: US)
  Receive Date: 20150513
  Receipt Date: 20150513
  Transmission Date: 20150821
  Serious: No
  Sender: FDA-Public Use
  Company Number: US-ASTRAZENECA-2015SE42397

PATIENT
  Age: 73 Year
  Sex: Female
  Weight: 70.3 kg

DRUGS (4)
  1. FUNGI MEDICINE [Concomitant]
     Indication: ONYCHOCLASIS
  2. METOPROLOL SUCCINATE. [Suspect]
     Active Substance: METOPROLOL SUCCINATE
     Indication: CARDIAC DISORDER
     Route: 048
  3. UNSPECIFIED MEDICATIONS [Concomitant]
     Active Substance: UNSPECIFIED INGREDIENT
  4. METOPROLOL SUCCINATE. [Suspect]
     Active Substance: METOPROLOL SUCCINATE
     Indication: CARDIAC DISORDER
     Route: 048

REACTIONS (6)
  - Onychomadesis [Unknown]
  - Intentional product misuse [Unknown]
  - Product use issue [Unknown]
  - Nail bed bleeding [Unknown]
  - Onychalgia [Unknown]
  - Nail bed disorder [Unknown]

NARRATIVE: CASE EVENT DATE: 2012
